FAERS Safety Report 7253209-6 (Version None)
Quarter: 2011Q1

REPORT INFORMATION
  Report Type: 
  Country: None (occurrence: None)
  Receive Date: 20110129
  Receipt Date: 20100216
  Transmission Date: 20110831
  Serious: No
  Sender: FDA-Public Use
  Company Number: US-ABBOTT-10P-163-0626510-00

PATIENT
  Weight: 99.88 kg

DRUGS (8)
  1. MELOXICAM [Concomitant]
     Indication: ARTHRITIS
  2. HYDROCHLOROTHIAZIDE [Concomitant]
     Indication: HYPERTENSION
  3. HUMIRA [Suspect]
     Indication: PYODERMA GANGRENOSUM
     Dates: start: 20090101, end: 20090101
  4. HUMIRA [Suspect]
     Dates: start: 20100101
  5. MULTIPLE VITAMINS [Concomitant]
     Indication: VITAMIN SUPPLEMENTATION
  6. HYDROCHLOROTHIAZIDE [Concomitant]
     Indication: NEPHROLITHIASIS
  7. ASPIRIN [Concomitant]
     Indication: ROUTINE HEALTH MAINTENANCE
  8. HUMIRA [Suspect]
     Indication: CROHN'S DISEASE
     Dates: start: 20091201, end: 20091201

REACTIONS (5)
  - ARTHRALGIA [None]
  - FEELING HOT [None]
  - HEADACHE [None]
  - CHILLS [None]
  - PAIN [None]
